FAERS Safety Report 24526502 (Version 5)
Quarter: 2025Q1

REPORT INFORMATION
  Report Type: Spontaneous
  Country: JP (occurrence: JP)
  Receive Date: 20241021
  Receipt Date: 20250327
  Transmission Date: 20250408
  Serious: Yes (Life-Threatening, Hospitalization)
  Sender: AMGEN
  Company Number: JP-Vifor (International) Inc.-VIT-2024-09669

PATIENT
  Age: 79 Year
  Sex: Female
  Weight: 49.9 kg

DRUGS (37)
  1. TAVNEOS [Suspect]
     Active Substance: AVACOPAN
     Indication: Granulomatosis with polyangiitis
     Dosage: 30,MG,BID
     Route: 048
     Dates: start: 20240730, end: 20240919
  2. SULFAMETHOXAZOLE\TRIMETHOPRIM [Concomitant]
     Active Substance: SULFAMETHOXAZOLE\TRIMETHOPRIM
     Indication: Antifungal prophylaxis
     Dosage: 1,DF,QD
     Route: 048
     Dates: start: 20240806, end: 20240918
  3. RITUXIMAB [Concomitant]
     Active Substance: RITUXIMAB
     Indication: Granulomatosis with polyangiitis
     Dosage: 500,MG,QD
     Route: 040
     Dates: start: 20240802, end: 20240802
  4. RITUXIMAB [Concomitant]
     Active Substance: RITUXIMAB
     Dosage: 500,MG,QD
     Route: 040
     Dates: start: 20240809, end: 20240809
  5. RITUXIMAB [Concomitant]
     Active Substance: RITUXIMAB
     Dosage: 500,MG,QD
     Route: 040
     Dates: start: 20240816, end: 20240816
  6. RITUXIMAB [Concomitant]
     Active Substance: RITUXIMAB
     Dosage: 500,MG,QD
     Route: 040
     Dates: start: 20240823, end: 20240823
  7. FUNGIZONE [Concomitant]
     Active Substance: AMPHOTERICIN B
     Dosage: LIQUID MEDICINE FOR INTERNAL USE
     Route: 048
     Dates: start: 20240726, end: 20240824
  8. CALONAL [Concomitant]
     Active Substance: ACETAMINOPHEN
     Dosage: 500,MG,QD
     Route: 048
     Dates: start: 20240802, end: 20240802
  9. CALONAL [Concomitant]
     Active Substance: ACETAMINOPHEN
     Dosage: 500,MG,QD
     Route: 048
     Dates: start: 20240809, end: 20240809
  10. CALONAL [Concomitant]
     Active Substance: ACETAMINOPHEN
     Dosage: 500,MG,QD
     Route: 048
     Dates: start: 20240816, end: 20240816
  11. CALONAL [Concomitant]
     Active Substance: ACETAMINOPHEN
     Dosage: 500 MILLIGRAM, QD
     Route: 048
     Dates: start: 20240823, end: 20240823
  12. CANDESARTAN CILEXETIL [Concomitant]
     Active Substance: CANDESARTAN CILEXETIL
     Dosage: 2,MG,QD
     Route: 048
     Dates: start: 20240723, end: 20240809
  13. PRAVASTATIN SODIUM [Concomitant]
     Active Substance: PRAVASTATIN SODIUM
     Dosage: 5,MG,QD
     Route: 048
     Dates: start: 20240723, end: 20240808
  14. CANDESARTAN [Concomitant]
     Active Substance: CANDESARTAN
     Dosage: 2,MG,QD
     Route: 048
     Dates: start: 20240810, end: 20240824
  15. CANDESARTAN [Concomitant]
     Active Substance: CANDESARTAN
     Dosage: 2,MG,QD
     Route: 048
     Dates: start: 20240918, end: 20241017
  16. FAMOTIDINE [Concomitant]
     Active Substance: FAMOTIDINE
     Dosage: 20,MG,QD
     Route: 048
     Dates: start: 20240802, end: 20240802
  17. FAMOTIDINE [Concomitant]
     Active Substance: FAMOTIDINE
     Dosage: 20,MG,QD
     Route: 048
     Dates: start: 20240809, end: 20240809
  18. FAMOTIDINE [Concomitant]
     Active Substance: FAMOTIDINE
     Dosage: 20,MG,QD
     Route: 048
     Dates: start: 20240816, end: 20240816
  19. FAMOTIDINE [Concomitant]
     Active Substance: FAMOTIDINE
     Dosage: 20,MG,QD
     Route: 048
     Dates: start: 20240823, end: 20240823
  20. SIMVASTATIN [Concomitant]
     Active Substance: SIMVASTATIN
     Dosage: 5,MG,QD
     Route: 048
     Dates: start: 20240809, end: 20240918
  21. RABEPRAZOLE SODIUM [Concomitant]
     Active Substance: RABEPRAZOLE SODIUM
     Dosage: 10,MG,QD
     Route: 048
     Dates: start: 20240724, end: 20240823
  22. RABEPRAZOLE SODIUM [Concomitant]
     Active Substance: RABEPRAZOLE SODIUM
     Dosage: 10 MG, QD
     Route: 048
     Dates: start: 20240918, end: 20241017
  23. PREDNISOLONE [Concomitant]
     Active Substance: PREDNISOLONE
     Indication: Granulomatosis with polyangiitis
     Dosage: 25,MG,QD
     Route: 048
     Dates: start: 20240727, end: 20240809
  24. PREDNISOLONE [Concomitant]
     Active Substance: PREDNISOLONE
     Dosage: 20,MG,QD
     Route: 048
     Dates: start: 20240810, end: 20240824
  25. PREDNISOLONE [Concomitant]
     Active Substance: PREDNISOLONE
     Dosage: 17.5,MG,QD
     Route: 048
     Dates: start: 20240825, end: 20241007
  26. PREDNISOLONE [Concomitant]
     Active Substance: PREDNISOLONE
     Dosage: 15,MG,QD
     Route: 048
     Dates: start: 20241008, end: 20241017
  27. POLARAMINE [Concomitant]
     Active Substance: DEXCHLORPHENIRAMINE MALEATE
     Dosage: 2,MG,QD
     Route: 048
     Dates: start: 20240802, end: 20240802
  28. POLARAMINE [Concomitant]
     Active Substance: DEXCHLORPHENIRAMINE MALEATE
     Dosage: 2,MG,QD
     Route: 048
     Dates: start: 20240809, end: 20240809
  29. POLARAMINE [Concomitant]
     Active Substance: DEXCHLORPHENIRAMINE MALEATE
     Dosage: 2,MG,QD
     Route: 048
     Dates: start: 20240816, end: 20240816
  30. POLARAMINE [Concomitant]
     Active Substance: DEXCHLORPHENIRAMINE MALEATE
     Dosage: 2,MG,QD
     Route: 048
     Dates: start: 20240823, end: 20240823
  31. AMOXICILLIN [Concomitant]
     Active Substance: AMOXICILLIN
     Dosage: 250,MG,TID
     Route: 048
     Dates: start: 20240730, end: 20240802
  32. KETOPROFEN [Concomitant]
     Active Substance: KETOPROFEN
     Dosage: TAPE
     Route: 062
     Dates: start: 20240723, end: 20240824
  33. SULFAMETHOXAZOLE\TRIMETHOPRIM [Concomitant]
     Active Substance: SULFAMETHOXAZOLE\TRIMETHOPRIM
     Dosage: 1,DF,QD
     Route: 048
     Dates: start: 20240806, end: 20240824
  34. LOXOPROFEN SODIUM [Concomitant]
     Active Substance: LOXOPROFEN SODIUM
     Dosage: TAPE
     Route: 062
     Dates: start: 20240806, end: 20240824
  35. MAGNESIUM OXIDE [Concomitant]
     Active Substance: MAGNESIUM OXIDE
     Dosage: 330,MG,TID
     Route: 048
     Dates: start: 20240927, end: 20241018
  36. EURAX [Concomitant]
     Active Substance: CROTAMITON
     Route: 065
     Dates: start: 20240918
  37. ELDECALCITOL [Concomitant]
     Active Substance: ELDECALCITOL
     Dosage: 0.75 MUG, QD
     Route: 048
     Dates: start: 20240823, end: 20240918

REACTIONS (1)
  - Vanishing bile duct syndrome [Not Recovered/Not Resolved]

NARRATIVE: CASE EVENT DATE: 20240903
